FAERS Safety Report 8548133-2 (Version None)
Quarter: 2012Q3

REPORT INFORMATION
  Report Type: 
  Country: None (occurrence: None)
  Receive Date: 20120730
  Receipt Date: 20120720
  Transmission Date: 20120928
  Serious: Yes (Hospitalization)
  Sender: FDA-Public Use
  Company Number: FR-BIOGENIDEC-2012BI016214

PATIENT
  Age: 26 Year
  Sex: Female

DRUGS (7)
  1. GILENYA [Concomitant]
     Indication: MULTIPLE SCLEROSIS
     Dates: start: 20120416, end: 20120429
  2. SOLU-MEDROL [Concomitant]
     Route: 042
     Dates: start: 20120401
  3. TYSABRI [Suspect]
     Indication: MULTIPLE SCLEROSIS
     Route: 042
     Dates: start: 20080422, end: 20120122
  4. SOLU-MEDROL [Concomitant]
     Route: 042
     Dates: start: 20120201
  5. SOLU-MEDROL [Concomitant]
     Indication: MULTIPLE SCLEROSIS RELAPSE
     Route: 042
     Dates: start: 20120201
  6. SOLU-MEDROL [Concomitant]
     Route: 042
     Dates: start: 20120201
  7. SOLU-MEDROL [Concomitant]
     Route: 042
     Dates: start: 20120401

REACTIONS (2)
  - PROGRESSIVE MULTIFOCAL LEUKOENCEPHALOPATHY [None]
  - IMMUNE RECONSTITUTION SYNDROME [None]
